FAERS Safety Report 25818757 (Version 7)
Quarter: 2025Q4

REPORT INFORMATION
  Report Type: Spontaneous
  Country: US (occurrence: US)
  Receive Date: 20250918
  Receipt Date: 20251110
  Transmission Date: 20260118
  Serious: No
  Sender: BIOGEN
  Company Number: US-BIOGEN-2025BI01323429

PATIENT
  Age: 65 Year
  Sex: Female

DRUGS (3)
  1. VUMERITY [Suspect]
     Active Substance: DIROXIMEL FUMARATE
     Indication: Multiple sclerosis
     Dosage: DOSAGE TEXT:START DATE ALSO REPORTED AS: 05-SEP-2025?START DATE ALSO REPORTED AS SEP-2025
     Dates: start: 20250902, end: 20250911
  2. VUMERITY [Suspect]
     Active Substance: DIROXIMEL FUMARATE
     Dates: start: 20250912
  3. VUMERITY [Suspect]
     Active Substance: DIROXIMEL FUMARATE
     Dates: start: 20250913, end: 20250916

REACTIONS (17)
  - Product dose omission in error [Unknown]
  - Fatigue [Unknown]
  - Abdominal distension [Unknown]
  - Paraesthesia [Unknown]
  - Intentional product misuse [Recovered/Resolved]
  - Flushing [Unknown]
  - Weight increased [Unknown]
  - Hyperphagia [Unknown]
  - Bronchitis [Not Recovered/Not Resolved]
  - Pruritus [Unknown]
  - Hypersomnia [Unknown]
  - Headache [Unknown]
  - Pain [Unknown]
  - Fibromyalgia [Unknown]
  - Rheumatoid arthritis [Unknown]
  - Nausea [Unknown]
  - Discomfort [Unknown]

NARRATIVE: CASE EVENT DATE: 20250101
